FAERS Safety Report 11472450 (Version 4)
Quarter: 2015Q3

REPORT INFORMATION
  Report Type: Report from Study
  Country: ES (occurrence: ES)
  Receive Date: 20150908
  Receipt Date: 20150929
  Transmission Date: 20151125
  Serious: Yes (Life-Threatening, Hospitalization)
  Sender: FDA-Public Use
  Company Number: ES-JNJFOC-20150902569

PATIENT
  Age: 81 Year
  Sex: Male
  Weight: 83 kg

DRUGS (1)
  1. STELARA [Suspect]
     Active Substance: USTEKINUMAB
     Indication: PSORIASIS
     Route: 058
     Dates: start: 20150313, end: 20150717

REACTIONS (3)
  - Weight decreased [Unknown]
  - Acute leukaemia [Not Recovered/Not Resolved]
  - Aplasia [Unknown]

NARRATIVE: CASE EVENT DATE: 2015
